FAERS Safety Report 8365056-2 (Version None)
Quarter: 2012Q2

REPORT INFORMATION
  Report Type: 
  Country: None (occurrence: None)
  Receive Date: 20120516
  Receipt Date: 20120504
  Transmission Date: 20120825
  Serious: Yes (Other)
  Sender: FDA-Public Use
  Company Number: AT-BRISTOL-MYERS SQUIBB COMPANY-16576530

PATIENT
  Age: 36 Year
  Sex: Female
  Weight: 55 kg

DRUGS (7)
  1. AMPHOTERICIN B [Concomitant]
  2. REYATAZ [Suspect]
     Indication: ANTIRETROVIRAL THERAPY
     Route: 048
     Dates: start: 20110315
  3. OXAZEPAM [Concomitant]
     Dosage: TABS
  4. TRUVADA [Suspect]
     Indication: ANTIRETROVIRAL THERAPY
     Dates: start: 20110301, end: 20120501
  5. PASPERTIN [Concomitant]
  6. MORPHINE [Concomitant]
     Dosage: FILM-COATED TABS
  7. RITONAVIR [Suspect]
     Indication: ANTIRETROVIRAL THERAPY
     Dates: start: 20110301, end: 20120501

REACTIONS (3)
  - RENAL FAILURE [None]
  - HIGH DENSITY LIPOPROTEIN DECREASED [None]
  - EMPHYSEMA [None]
